FAERS Safety Report 25739612 (Version 1)
Quarter: 2025Q3

REPORT INFORMATION
  Report Type: Report from Study
  Country: US (occurrence: US)
  Receive Date: 20250829
  Receipt Date: 20250829
  Transmission Date: 20251021
  Serious: No
  Sender: SUNOVION
  Company Number: US-SUMITOMO PHARMA SWITZERLAND GMBH-2025SPA010838

PATIENT
  Age: 72 Year
  Sex: Male

DRUGS (19)
  1. ORGOVYX [Suspect]
     Active Substance: RELUGOLIX
     Indication: Prostate cancer
     Route: 048
  2. ALPRAZOLAM [Concomitant]
     Active Substance: ALPRAZOLAM
  3. AZITHROMYCIN [Concomitant]
     Active Substance: AZITHROMYCIN
  4. CLOBETASOL PROPIONATE [Concomitant]
     Active Substance: CLOBETASOL PROPIONATE
  5. BETAMETHASONE CLOTRIMAZOLE [Concomitant]
     Active Substance: BETAMETHASONE DIPROPIONATE\CLOTRIMAZOLE
  6. ERYTHROMYCIN [Concomitant]
     Active Substance: ERYTHROMYCIN
  7. LEVOTHYROXINE SODIUM [Concomitant]
     Active Substance: LEVOTHYROXINE SODIUM
  8. LOSARTAN POTASSIUM [Concomitant]
     Active Substance: LOSARTAN POTASSIUM
  9. MELOXICAM [Concomitant]
     Active Substance: MELOXICAM
  10. MUPIROCIN [Concomitant]
     Active Substance: MUPIROCIN
  11. DEXAMETHASONE\NEOMYCIN\POLYMYXIN B [Concomitant]
     Active Substance: DEXAMETHASONE\NEOMYCIN\POLYMYXIN B
  12. NIFEDIPINE [Concomitant]
     Active Substance: NIFEDIPINE
  13. OMEGA-3-ACID ETHYL ESTER [Concomitant]
     Active Substance: OMEGA-3-ACID ETHYL ESTERS
  14. PAXLOVID [Concomitant]
     Active Substance: NIRMATRELVIR\RITONAVIR
  15. SILDENAFIL CITRATE [Concomitant]
     Active Substance: SILDENAFIL CITRATE
  16. SIMVASTATIN [Concomitant]
     Active Substance: SIMVASTATIN
  17. TACROLIMUS [Concomitant]
     Active Substance: TACROLIMUS
  18. TADALAFIL [Concomitant]
     Active Substance: TADALAFIL
  19. TRAZODONE [Concomitant]
     Active Substance: TRAZODONE HYDROCHLORIDE

REACTIONS (4)
  - Brain fog [Unknown]
  - Fatigue [Unknown]
  - Hot flush [Unknown]
  - Loss of libido [Unknown]
